FAERS Safety Report 9916119 (Version 1)
Quarter: 2014Q1

REPORT INFORMATION
  Report Type: Spontaneous
  Country: US (occurrence: None)
  Receive Date: 20140220
  Receipt Date: 20140220
  Transmission Date: 20141002
  Serious: Yes (Other)
  Sender: FDA-Public Use
  Company Number: None

PATIENT
  Age: 59 Year
  Sex: Female
  Weight: 82.1 kg

DRUGS (1)
  1. HERCEPTIN [Suspect]
     Indication: BREAST CANCER
     Route: 042
     Dates: start: 20140108, end: 20140109

REACTIONS (6)
  - Rash [None]
  - Rash [None]
  - Hypoaesthesia [None]
  - Paraesthesia [None]
  - Onychalgia [None]
  - Activities of daily living impaired [None]
